FAERS Safety Report 6704983-6 (Version None)
Quarter: 2010Q2

REPORT INFORMATION
  Report Type: 
  Country: None (occurrence: None)
  Receive Date: 20100430
  Receipt Date: 20100427
  Transmission Date: 20101027
  Serious: Yes (Congenital Anomaly)
  Sender: FDA-Public Use
  Company Number: A0851847A

PATIENT
  Sex: Male

DRUGS (4)
  1. PAXIL [Suspect]
     Indication: BIPOLAR DISORDER
     Dosage: 20MG PER DAY
     Dates: start: 20000831, end: 20021008
  2. VITAMIN TAB [Concomitant]
  3. TERBUTALINE SULFATE [Concomitant]
  4. CELEXA [Concomitant]

REACTIONS (16)
  - ASTHMA [None]
  - ATRIAL SEPTAL DEFECT [None]
  - BRACHYCEPHALY [None]
  - CARDIAC MURMUR [None]
  - COLOBOMA [None]
  - CONGENITAL AORTIC STENOSIS [None]
  - CONGENITAL TRACHEOMALACIA [None]
  - CRANIOSYNOSTOSIS [None]
  - DRUG EXPOSURE DURING PREGNANCY [None]
  - GASTROOESOPHAGEAL REFLUX DISEASE [None]
  - MATERNAL DRUGS AFFECTING FOETUS [None]
  - PATENT DUCTUS ARTERIOSUS [None]
  - PULMONARY VALVE STENOSIS [None]
  - SINGLE UMBILICAL ARTERY [None]
  - SPEECH DISORDER DEVELOPMENTAL [None]
  - UMBILICAL CORD SHORT [None]
